FAERS Safety Report 12503263 (Version 1)
Quarter: 2016Q2

REPORT INFORMATION
  Report Type: Spontaneous
  Country: US (occurrence: US)
  Receive Date: 20160628
  Receipt Date: 20160628
  Transmission Date: 20160815
  Serious: No
  Sender: FDA-Public Use
  Company Number: US-FERRINGPH-2015FE03974

PATIENT
  Age: 34 Year
  Sex: Female
  Weight: 70.3 kg

DRUGS (1)
  1. BRAVELLE [Suspect]
     Active Substance: FOLLITROPIN\UROFOLLITROPIN
     Indication: INFERTILITY
     Dosage: UNK, DAILY
     Route: 058
     Dates: start: 20150828, end: 20150906

REACTIONS (1)
  - Drug ineffective [Not Recovered/Not Resolved]

NARRATIVE: CASE EVENT DATE: 20150906
